FAERS Safety Report 6139795-8 (Version None)
Quarter: 2009Q2

REPORT INFORMATION
  Report Type: 
  Country: None (occurrence: None)
  Receive Date: 20090401
  Receipt Date: 20090327
  Transmission Date: 20091009
  Serious: Yes (Other)
  Sender: FDA-Public Use
  Company Number: B0561035A

PATIENT
  Sex: Male

DRUGS (2)
  1. RELENZA [Suspect]
     Indication: INFLUENZA
     Dosage: 10MG PER DAY
     Route: 055
     Dates: start: 20090216, end: 20090216
  2. CHINESE MEDICINE [Concomitant]
     Dosage: 7.5G THREE TIMES PER DAY
     Route: 048

REACTIONS (7)
  - ABNORMAL BEHAVIOUR [None]
  - AGGRESSION [None]
  - HYPERHIDROSIS [None]
  - MEMORY IMPAIRMENT [None]
  - POOR QUALITY SLEEP [None]
  - RESTLESSNESS [None]
  - VISION BLURRED [None]
